APPROVED DRUG PRODUCT: CARBOPROST TROMETHAMINE
Active Ingredient: CARBOPROST TROMETHAMINE
Strength: EQ 0.25MG BASE/ML
Dosage Form/Route: INJECTABLE;INJECTION
Application: A215901 | Product #001
Applicant: ANI PHARMACEUTICALS INC
Approved: Jan 25, 2024 | RLD: No | RS: No | Type: DISCN